FAERS Safety Report 16987158 (Version 1)
Quarter: 2019Q4

REPORT INFORMATION
  Report Type: Spontaneous
  Country: US (occurrence: US)
  Receive Date: 20190918
  Receipt Date: 20190918
  Transmission Date: 20200122
  Serious: Yes (Death, Hospitalization)
  Sender: FDA-Public Use
  Company Number: None

PATIENT
  Age: 16 Year
  Sex: Female
  Weight: 55 kg

DRUGS (5)
  1. ONCASPAR [Suspect]
     Active Substance: PEGASPARGASE
     Dates: end: 20190821
  2. VINCRISTINE [Suspect]
     Active Substance: VINCRISTINE
     Dates: end: 20190813
  3. CYTARABINE. [Suspect]
     Active Substance: CYTARABINE
     Dates: end: 20190822
  4. METHOTREXATE. [Suspect]
     Active Substance: METHOTREXATE
     Dates: end: 20190813
  5. DEXAMETHASONE. [Suspect]
     Active Substance: DEXAMETHASONE
     Dates: end: 20190813

REACTIONS (27)
  - Blood lactic acid increased [None]
  - Hepatomegaly [None]
  - Candida test positive [None]
  - Headache [None]
  - Thrombosis [None]
  - Hypoxia [None]
  - Blood gases abnormal [None]
  - General physical health deterioration [None]
  - Bacteraemia [None]
  - Laryngeal inflammation [None]
  - Fluid retention [None]
  - Hepatic failure [None]
  - Hypotension [None]
  - Sinus tachycardia [None]
  - Escherichia test positive [None]
  - Pulmonary mass [None]
  - Ascites [None]
  - Pain [None]
  - Diarrhoea [None]
  - Pericardial effusion [None]
  - Neutropenia [None]
  - Seizure [None]
  - Therapy cessation [None]
  - Hepatic congestion [None]
  - Respiratory failure [None]
  - Anaemia [None]
  - Hypokalaemia [None]

NARRATIVE: CASE EVENT DATE: 20190909
